FAERS Safety Report 24824008 (Version 2)
Quarter: 2025Q1

REPORT INFORMATION
  Report Type: Report from Study
  Country: BE (occurrence: BE)
  Receive Date: 20250109
  Receipt Date: 20250113
  Transmission Date: 20250408
  Serious: Yes (Other)
  Sender: NOVARTIS
  Company Number: BE-002147023-NVSC2022BE116685

PATIENT
  Sex: Female

DRUGS (1)
  1. KESIMPTA [Suspect]
     Active Substance: OFATUMUMAB
     Indication: Relapsing multiple sclerosis
     Dosage: 20 MG, QMO
     Route: 058
     Dates: start: 20220510, end: 20220517

REACTIONS (4)
  - Pneumonia [Recovered/Resolved]
  - Illness [Unknown]
  - Influenza [Not Recovered/Not Resolved]
  - Muscular weakness [Not Recovered/Not Resolved]
